FAERS Safety Report 8459977-X (Version None)
Quarter: 2012Q2

REPORT INFORMATION
  Report Type: 
  Country: None (occurrence: None)
  Receive Date: 20120622
  Receipt Date: 20120621
  Transmission Date: 20120825
  Serious: Yes (Death)
  Sender: FDA-Public Use
  Company Number: PHHY2012NL049654

PATIENT
  Sex: Male
  Weight: 85 kg

DRUGS (3)
  1. ZOMETA [Suspect]
     Indication: METASTASES TO BONE
     Dosage: 4 MG/ 100 ML ONCE PER 28
     Route: 042
     Dates: start: 20120326
  2. ZOMETA [Suspect]
     Dosage: 4 MG/ 100 ML ONCE PER 28
     Route: 042
     Dates: start: 20120423
  3. ZOMETA [Suspect]
     Dosage: 4 MG/ 100 ML ONCE PER 28
     Route: 042
     Dates: start: 20120521, end: 20120601

REACTIONS (2)
  - NEOPLASM MALIGNANT [None]
  - NEOPLASM PROGRESSION [None]
